FAERS Safety Report 8314871-X (Version None)
Quarter: 2012Q2

REPORT INFORMATION
  Report Type: 
  Country: None (occurrence: None)
  Receive Date: 20120426
  Receipt Date: 20120404
  Transmission Date: 20120825
  Serious: No
  Sender: FDA-Public Use
  Company Number: US-MYLANLABS-2012S1005893

PATIENT
  Age: 63 Year
  Sex: Female
  Weight: 68.04 kg

DRUGS (5)
  1. ACEON [Concomitant]
     Indication: HYPERTENSION
     Route: 048
  2. SYNTHROID [Concomitant]
     Indication: HYPOTHYROIDISM
  3. CLONIDINE [Suspect]
     Dosage: CHANGE PATCH EVERY 3 DAYS
     Route: 062
  4. OTHER DRUGS FOR ACID RELATED DISORDERS [Concomitant]
  5. CLONIDINE [Suspect]
     Indication: HYPERTENSION
     Dosage: CHANGE PATCH EVERY 3 DAYS
     Route: 062

REACTIONS (5)
  - APPLICATION SITE HAEMATOMA [None]
  - DRY MOUTH [None]
  - DRUG EFFECT DECREASED [None]
  - HYPERTENSION [None]
  - DIZZINESS [None]
